FAERS Safety Report 8291680-1 (Version None)
Quarter: 2012Q2

REPORT INFORMATION
  Report Type: 
  Country: None (occurrence: None)
  Receive Date: 20120417
  Receipt Date: 20111018
  Transmission Date: 20120825
  Serious: No
  Sender: FDA-Public Use
  Company Number: US-ASTRAZENECA-2011SE20666

PATIENT
  Age: 50 Year
  Sex: Female

DRUGS (4)
  1. OTC MEDICATIONS [Concomitant]
     Route: 055
  2. NEXIUM [Suspect]
     Route: 048
  3. CALCIUM CARBONATE [Concomitant]
     Route: 055
  4. SYMBICORT [Concomitant]
     Route: 055

REACTIONS (6)
  - CHEST PAIN [None]
  - DYSPEPSIA [None]
  - APHAGIA [None]
  - VOMITING [None]
  - DRUG DOSE OMISSION [None]
  - ADVERSE EVENT [None]
